FAERS Safety Report 8879137 (Version 1)
Quarter: 2012Q4

REPORT INFORMATION
  Report Type: Spontaneous
  Country: US (occurrence: None)
  Receive Date: 20121031
  Receipt Date: 20121031
  Transmission Date: 20130627
  Serious: Yes (Hospitalization)
  Sender: FDA-Public Use
  Company Number: None

PATIENT
  Age: 55 Year
  Sex: Male

DRUGS (2)
  1. HUMIRA [Suspect]
     Indication: JUVENILE RHEUMATOID ARTHRITIS
     Route: 058
     Dates: start: 2005, end: 201205
  2. FORTEO [Suspect]
     Indication: OSTEOPOROSIS
     Route: 048
     Dates: start: 2005, end: 2007

REACTIONS (2)
  - Convulsion [None]
  - Squamous cell carcinoma [None]
